FAERS Safety Report 9164643 (Version 1)
Quarter: 2013Q1

REPORT INFORMATION
  Report Type: Report from Study
  Country: AU (occurrence: AU)
  Receive Date: 20130315
  Receipt Date: 20130315
  Transmission Date: 20140127
  Serious: Yes (Other)
  Sender: FDA-Public Use
  Company Number: AU-JNJFOC-20130307097

PATIENT
  Sex: Male

DRUGS (5)
  1. STELARA [Suspect]
     Indication: PSORIASIS
     Dosage: TOTAL OF 15 INJECTIONS
     Route: 058
     Dates: start: 20130306
  2. STELARA [Suspect]
     Indication: PSORIASIS
     Route: 058
     Dates: start: 20120101
  3. STELARA [Suspect]
     Indication: PSORIASIS
     Route: 058
     Dates: start: 20111024, end: 20111024
  4. STELARA [Suspect]
     Indication: PSORIASIS
     Route: 058
     Dates: start: 20100512, end: 20110801
  5. PRISTIQ [Concomitant]
     Indication: DEPRESSION

REACTIONS (6)
  - Diarrhoea haemorrhagic [Unknown]
  - Nausea [Unknown]
  - Injection site bruising [Unknown]
  - Nasal congestion [Unknown]
  - Chest discomfort [Unknown]
  - Drug ineffective [Unknown]
